FAERS Safety Report 19722898 (Version 1)
Quarter: 2021Q3

REPORT INFORMATION
  Report Type: Report from Study
  Country: US (occurrence: US)
  Receive Date: 20210820
  Receipt Date: 20210820
  Transmission Date: 20211014
  Serious: No
  Sender: FDA-Public Use
  Company Number: US-ACADIA PHARMACEUTICALS INC.-ACA-2021-PIM-002772

PATIENT
  Sex: Male

DRUGS (13)
  1. ELIQUIS [Concomitant]
     Active Substance: APIXABAN
  2. NUPLAZID [Suspect]
     Active Substance: PIMAVANSERIN TARTRATE
     Indication: DELUSION
  3. FUROSEMIDE. [Concomitant]
     Active Substance: FUROSEMIDE
  4. AMANTADINE. [Concomitant]
     Active Substance: AMANTADINE HYDROCHLORIDE
  5. AMIODARONE [Concomitant]
     Active Substance: AMIODARONE
  6. IPRATROPIUM [Concomitant]
     Active Substance: IPRATROPIUM
  7. QUETIAPINE. [Concomitant]
     Active Substance: QUETIAPINE
  8. NUPLAZID [Suspect]
     Active Substance: PIMAVANSERIN TARTRATE
     Indication: HALLUCINATION
     Dosage: 34 MILLIGRAM, QD
     Route: 048
     Dates: start: 202107
  9. NUPLAZID [Suspect]
     Active Substance: PIMAVANSERIN TARTRATE
     Indication: PARKINSON^S DISEASE PSYCHOSIS
     Dosage: 34 MILLIGRAM, QD
     Route: 065
     Dates: start: 202008
  10. LEVOTHYROXINE. [Concomitant]
     Active Substance: LEVOTHYROXINE
  11. RIVASTIGMINE. [Concomitant]
     Active Substance: RIVASTIGMINE
  12. XADAGO [Concomitant]
     Active Substance: SAFINAMIDE MESYLATE
  13. CARBIDOPA/LEVODOPA [Concomitant]
     Active Substance: CARBIDOPA\LEVODOPA

REACTIONS (5)
  - Peripheral swelling [Not Recovered/Not Resolved]
  - Personality change [Not Recovered/Not Resolved]
  - Drug intolerance [Unknown]
  - Condition aggravated [Unknown]
  - Cardiac disorder [Not Recovered/Not Resolved]
